FAERS Safety Report 5839956-9 (Version None)
Quarter: 2008Q3

REPORT INFORMATION
  Report Type: 
  Country: None (occurrence: None)
  Receive Date: 20080731
  Receipt Date: 20080509
  Transmission Date: 20090109
  Serious: No
  Sender: FDA-Public Use
  Company Number: US200805002069

PATIENT
  Age: 70 Year
  Sex: Female
  Weight: 80.3 kg

DRUGS (8)
  1. BYETTA [Suspect]
     Indication: TYPE 2 DIABETES MELLITUS
     Dosage: 5 UG, 2/D, SUBCUTANEOUS
     Route: 058
     Dates: start: 20080503, end: 20080511
  2. PRIMIDONE [Concomitant]
  3. LISINOPRIL [Concomitant]
  4. COREG [Concomitant]
  5. PHENERGAN HCL [Concomitant]
  6. METFORMIN HCL [Concomitant]
  7. LEXAPRO [Concomitant]
  8. ANTIHYPERTENSIVES [Concomitant]

REACTIONS (8)
  - CHEST PAIN [None]
  - DIZZINESS [None]
  - MALAISE [None]
  - MUSCULAR WEAKNESS [None]
  - NAUSEA [None]
  - PAIN [None]
  - PARAESTHESIA [None]
  - SENSORY LOSS [None]
